FAERS Safety Report 8971552 (Version 2)
Quarter: 2013Q1

REPORT INFORMATION
  Report Type: Spontaneous
  Country: US (occurrence: US)
  Receive Date: 20121217
  Receipt Date: 20130204
  Transmission Date: 20140127
  Serious: Yes (Other)
  Sender: FDA-Public Use
  Company Number: US-BAYER-2012-131421

PATIENT
  Age: 18 Year
  Sex: Female
  Weight: 87.98 kg

DRUGS (1)
  1. MIRENA [Suspect]
     Indication: CONTRACEPTION
     Dosage: 20 MCG/24HR, CONT
     Route: 015
     Dates: start: 20120326

REACTIONS (8)
  - Vaginal haemorrhage [Not Recovered/Not Resolved]
  - Device issue [Not Recovered/Not Resolved]
  - Back pain [Not Recovered/Not Resolved]
  - Abdominal distension [Not Recovered/Not Resolved]
  - Uterine haemorrhage [None]
  - Vaginal discharge [None]
  - Endometritis [None]
  - Vaginal infection [None]
